FAERS Safety Report 5297929-1 (Version None)
Quarter: 2007Q2

REPORT INFORMATION
  Report Type: 
  Country: None (occurrence: None)
  Receive Date: 20070416
  Receipt Date: 20070410
  Transmission Date: 20071010
  Serious: Yes (Hospitalization)
  Sender: FDA-Public Use
  Company Number: NL-GLAXOSMITHKLINE-B0459208A

PATIENT
  Age: 2 Year
  Sex: Male
  Weight: 16 kg

DRUGS (2)
  1. LAMOTRIGINE [Suspect]
     Indication: EPILEPSY
     Dosage: 5MG SEE DOSAGE TEXT
     Route: 048
     Dates: start: 20070112, end: 20070119
  2. DEPAKENE [Concomitant]
     Dosage: 150MG SEE DOSAGE TEXT
     Route: 048
     Dates: start: 20060810, end: 20070116

REACTIONS (12)
  - ABNORMAL BEHAVIOUR [None]
  - ANXIETY [None]
  - APHASIA [None]
  - CONFUSIONAL STATE [None]
  - DISSOCIATION [None]
  - DYSKINESIA [None]
  - EPILEPSY [None]
  - HALLUCINATION [None]
  - MEMORY IMPAIRMENT [None]
  - METABOLIC DISORDER [None]
  - RESTLESSNESS [None]
  - THIRST [None]
